FAERS Safety Report 4951833-4 (Version None)
Quarter: 2006Q1

REPORT INFORMATION
  Report Type: 
  Country: None (occurrence: None)
  Receive Date: 20060323
  Receipt Date: 20051123
  Transmission Date: 20060701
  Serious: Yes (Hospitalization)
  Sender: FDA-Public Use
  Company Number: US-MERCK-0511USA03992

PATIENT
  Age: 49 Year
  Sex: Male
  Weight: 120 kg

DRUGS (4)
  1. VIOXX [Suspect]
     Indication: ARTHRALGIA
     Route: 048
     Dates: start: 20031006, end: 20040901
  2. ATENOLOL [Concomitant]
     Indication: MYOCARDIAL INFARCTION
     Route: 065
     Dates: start: 20011224
  3. ASPIRIN [Concomitant]
     Indication: PROPHYLAXIS
     Route: 065
     Dates: start: 20011219
  4. PLAVIX [Concomitant]
     Indication: MYOCARDIAL INFARCTION
     Route: 065
     Dates: start: 20011224

REACTIONS (5)
  - ARTHROPATHY [None]
  - DEPRESSION [None]
  - ERECTILE DYSFUNCTION [None]
  - INJURY [None]
  - MYOCARDIAL INFARCTION [None]
